FAERS Safety Report 5402411-4 (Version None)
Quarter: 2007Q3

REPORT INFORMATION
  Report Type: 
  Country: None (occurrence: None)
  Receive Date: 20070801
  Receipt Date: 20070730
  Transmission Date: 20080115
  Serious: Yes (Death)
  Sender: FDA-Public Use
  Company Number: DE-JNJFOC-20070706457

PATIENT
  Sex: Male
  Weight: 81.3 kg

DRUGS (4)
  1. SEMPERA [Suspect]
     Route: 042
  2. SEMPERA [Suspect]
     Indication: FUNGAL INFECTION
     Route: 042
  3. KLACID [Suspect]
     Indication: PNEUMONIA PRIMARY ATYPICAL
     Route: 048
  4. CANCIDAS [Suspect]
     Indication: PNEUMONIA PRIMARY ATYPICAL
     Route: 042

REACTIONS (2)
  - BLOOD BILIRUBIN INCREASED [None]
  - SEPSIS [None]
